FAERS Safety Report 18087552 (Version 1)
Quarter: 2020Q3

REPORT INFORMATION
  Report Type: Spontaneous
  Country: US (occurrence: US)
  Receive Date: 20200729
  Receipt Date: 20200729
  Transmission Date: 20201103
  Serious: Yes (Other)
  Sender: FDA-Public Use
  Company Number: US-FLEXION THERAPEUTICS, INC.-2020FLS000050

PATIENT

DRUGS (1)
  1. ZILRETTA [Suspect]
     Active Substance: TRIAMCINOLONE ACETONIDE
     Indication: ARTHRALGIA
     Route: 014

REACTIONS (1)
  - Arthritis bacterial [Unknown]
